FAERS Safety Report 6187049-6 (Version None)
Quarter: 2009Q2

REPORT INFORMATION
  Report Type: 
  Country: None (occurrence: None)
  Receive Date: 20090512
  Receipt Date: 20090428
  Transmission Date: 20091009
  Serious: Yes (Hospitalization, Other)
  Sender: FDA-Public Use
  Company Number: JP-BAYER-200911368BYL

PATIENT
  Age: 65 Year
  Sex: Male
  Weight: 66 kg

DRUGS (11)
  1. FLUDARA [Suspect]
     Indication: ACUTE MYELOID LEUKAEMIA
     Dosage: AS USED: 25 MG/M2  UNIT DOSE: 50 MG
     Route: 042
     Dates: start: 20080604, end: 20080608
  2. ALKERAN [Concomitant]
     Indication: ACUTE MYELOID LEUKAEMIA
     Dosage: AS USED: 40 MG/M2
     Route: 042
     Dates: start: 20080607, end: 20080608
  3. CYLOCIDE [Concomitant]
     Indication: ACUTE MYELOID LEUKAEMIA
     Dosage: AS USED: 30 MG
     Route: 037
     Dates: start: 20080602, end: 20080602
  4. PREDONINE INJ [Concomitant]
     Indication: ACUTE MYELOID LEUKAEMIA
     Dosage: AS USED: 20 MG
     Route: 037
     Dates: start: 20080602, end: 20080602
  5. METHOTREXATE [Concomitant]
     Indication: ACUTE MYELOID LEUKAEMIA
     Dosage: AS USED: 12 MG
     Route: 037
     Dates: start: 20080602, end: 20080602
  6. METHOTREXATE [Concomitant]
     Dosage: AS USED: 8.5 MG
     Route: 042
     Dates: start: 20080611, end: 20080611
  7. METHOTREXATE [Concomitant]
     Dosage: AS USED: 8.5 MG
     Route: 042
     Dates: start: 20080612, end: 20080612
  8. METHOTREXATE [Concomitant]
     Dosage: AS USED: 8 MG
     Route: 042
     Dates: start: 20080621, end: 20080621
  9. METHOTREXATE [Concomitant]
     Dosage: AS USED: 8.5 MG
     Route: 042
     Dates: start: 20080615, end: 20080615
  10. CONCENTRATED RED CELLS [Concomitant]
     Indication: PACKED RED BLOOD CELL TRANSFUSION
     Route: 042
     Dates: start: 20080606, end: 20080624
  11. PLATELETS [Concomitant]
     Indication: PLATELET TRANSFUSION
     Route: 042
     Dates: start: 20080609, end: 20080628

REACTIONS (3)
  - ACUTE GRAFT VERSUS HOST DISEASE [None]
  - CYSTITIS HAEMORRHAGIC [None]
  - CYTOMEGALOVIRUS VIRAEMIA [None]
